FAERS Safety Report 20643558 (Version 2)
Quarter: 2022Q3

REPORT INFORMATION
  Report Type: Spontaneous
  Country: US (occurrence: US)
  Receive Date: 20220328
  Receipt Date: 20220830
  Transmission Date: 20221026
  Serious: Yes (Death, Other)
  Sender: FDA-Public Use
  Company Number: US-TEVA-2022-US-2022001

PATIENT
  Age: 59 Year
  Sex: Male
  Weight: 89.8 kg

DRUGS (13)
  1. HYDROCHLOROTHIAZIDE\VALSARTAN [Suspect]
     Active Substance: HYDROCHLOROTHIAZIDE\VALSARTAN
     Indication: Hypertension
     Dosage: 160MG/12.5 MG
     Route: 065
     Dates: start: 20170511, end: 20180315
  2. HYDROCHLOROTHIAZIDE\VALSARTAN [Suspect]
     Active Substance: HYDROCHLOROTHIAZIDE\VALSARTAN
     Indication: Hypertension
     Dosage: 160 MG/12.5 MG
     Route: 065
     Dates: start: 20180220, end: 20180727
  3. IRBESARTAN [Concomitant]
     Active Substance: IRBESARTAN
     Indication: Hypertension
     Dosage: UNTIL DEATH 10-JUL-2021
     Route: 065
  4. AMLODIPINE [Concomitant]
     Active Substance: AMLODIPINE BESYLATE
     Indication: Hypertension
     Dosage: 5 MILLIGRAM DAILY; UNTIL DEATH 10-JUL-2021
     Route: 065
     Dates: start: 2005
  5. Irbesartan-Hydrochlorothiazide (Avalide) [Concomitant]
     Indication: Hypertension
     Dosage: 150/12.5 MG, UNTIL DEATH 10-JUL-2021
     Route: 065
     Dates: start: 2005
  6. SIMVASTATIN [Concomitant]
     Active Substance: SIMVASTATIN
     Indication: Blood cholesterol increased
     Dosage: 40 MILLIGRAM DAILY; UNTIL DEATH 10-JUL-2021
     Route: 065
     Dates: start: 2005
  7. FUROSEMIDE [Concomitant]
     Active Substance: FUROSEMIDE
     Indication: Renal disorder
     Dosage: 20 MILLIGRAM DAILY; UNTIL DEATH 10-JUL-2021
     Route: 065
  8. FUROSEMIDE [Concomitant]
     Active Substance: FUROSEMIDE
     Indication: Liver disorder
  9. ALLOPURINOL [Concomitant]
     Active Substance: ALLOPURINOL
     Indication: Gout
     Dosage: 300 MILLIGRAM DAILY; UNTIL DEATH 10-JUL-2021
     Route: 065
     Dates: start: 201703
  10. ASPIRIN [Concomitant]
     Active Substance: ASPIRIN
     Indication: Thrombosis
     Dosage: 81 MILLIGRAM DAILY; UNTIL DEATH 10-JUL-2021
     Route: 065
     Dates: start: 2020
  11. AFRIN [Concomitant]
     Active Substance: OXYMETAZOLINE
     Indication: Nasal congestion
     Dosage: 1 SPRAY PER NOSTRIL AS NEEDED UNTIL DEATH 10-JUL-2021
     Route: 065
  12. MUCINEX [Concomitant]
     Active Substance: GUAIFENESIN
     Indication: Cough
     Dosage: AS NEEDED UNTIL DEATH 10-JUL-2021
     Route: 065
  13. MUCINEX [Concomitant]
     Active Substance: GUAIFENESIN
     Indication: Nasal congestion

REACTIONS (4)
  - Cholangiocarcinoma [Fatal]
  - Hepatic cancer metastatic [Fatal]
  - Bone cancer [Fatal]
  - Pancreatic carcinoma metastatic [Unknown]
